FAERS Safety Report 15310454 (Version 1)
Quarter: 2018Q3

REPORT INFORMATION
  Report Type: Spontaneous
  Country: US (occurrence: US)
  Receive Date: 20180813
  Receipt Date: 20180813
  Transmission Date: 20181010
  Serious: Yes (Hospitalization)
  Sender: FDA-Public Use
  Company Number: None

PATIENT
  Age: 3 Year
  Sex: Male

DRUGS (12)
  1. LEVALBUTEROL. [Concomitant]
     Active Substance: LEVALBUTEROL
  2. TOBRAMYCIN. [Concomitant]
     Active Substance: TOBRAMYCIN
  3. HYOSCYAMINE. [Concomitant]
     Active Substance: HYOSCYAMINE
  4. LANSOPRAZOLE. [Concomitant]
     Active Substance: LANSOPRAZOLE
  5. COLISTIMETHATE [Concomitant]
     Active Substance: COLISTIMETHATE SODIUM
  6. GABAPENTIN. [Concomitant]
     Active Substance: GABAPENTIN
  7. FLUTICASONE. [Concomitant]
     Active Substance: FLUTICASONE
  8. NITROFURANTOIN. [Concomitant]
     Active Substance: NITROFURANTOIN
  9. OXYBUTYNIN. [Concomitant]
     Active Substance: OXYBUTYNIN CHLORIDE
  10. LEVETIRACETAM. [Suspect]
     Active Substance: LEVETIRACETAM
     Indication: SEIZURE
     Dates: start: 20170601, end: 20180715
  11. FERROUS SULFATE. [Concomitant]
     Active Substance: FERROUS SULFATE
  12. LORATADINE. [Concomitant]
     Active Substance: LORATADINE

REACTIONS (2)
  - Disease recurrence [None]
  - Pancreatitis acute [None]

NARRATIVE: CASE EVENT DATE: 20180701
